FAERS Safety Report 4576947-2 (Version None)
Quarter: 2005Q1

REPORT INFORMATION
  Report Type: 
  Country: None (occurrence: None)
  Receive Date: 20050208
  Receipt Date: 20050125
  Transmission Date: 20050727
  Serious: Yes (Other)
  Sender: FDA-Public Use
  Company Number: 2005022005

PATIENT
  Age: 44 Year
  Sex: Female
  Weight: 65.7716 kg

DRUGS (8)
  1. CELEBREX [Suspect]
     Indication: RHEUMATOID ARTHRITIS
     Dosage: 400 MG (200 MG, 2 IN 1 D), ORAL
     Route: 048
  2. ALL OTHER THERAPEUTIC PROUDUCTS (ALL OTHER THERAPEUTIC PRODUCTS) [Suspect]
     Indication: OVARIAN CANCER
  3. METHOTREXATE [Concomitant]
  4. HYDROXYCHLOROQUINE PHOSPHATE (HYDROXYCHLOROQUINE PHOSPHATE0 [Concomitant]
  5. BISOPROLOL FUMARATE AND HYDROCHLOROTHIAZIDE [Concomitant]
  6. EZETIMIBE (EZETIMIBE) [Concomitant]
  7. LANSOPRAZOLE [Concomitant]
  8. VITAMINS (VITAMINS) [Concomitant]

REACTIONS (2)
  - HEADACHE [None]
  - OVARIAN CANCER [None]
